FAERS Safety Report 4870819-1 (Version None)
Quarter: 2006Q1

REPORT INFORMATION
  Report Type: 
  Country: None (occurrence: None)
  Receive Date: 20060103
  Receipt Date: 20051005
  Transmission Date: 20060701
  Serious: Yes (Death, Hospitalization)
  Sender: FDA-Public Use
  Company Number: US-MERCK-0510USA04325

PATIENT
  Age: 74 Year
  Sex: Female

DRUGS (18)
  1. VIOXX [Suspect]
     Indication: ARTHRITIS
     Route: 048
     Dates: start: 20010727
  2. LITHONATE [Concomitant]
     Route: 065
  3. AMITRIPTYLINE HYDROCHLORIDE [Concomitant]
     Route: 065
  4. VASERETIC [Concomitant]
     Route: 065
  5. CLONAZEPAM [Concomitant]
     Route: 065
  6. ATENOLOL [Concomitant]
     Route: 065
  7. PROVERA [Concomitant]
     Route: 065
  8. PREMARIN [Concomitant]
     Route: 065
  9. COMBIVENT [Concomitant]
     Route: 065
  10. NIZORAL [Concomitant]
     Route: 065
  11. ALLEGRA [Concomitant]
     Route: 065
  12. CIPRO [Concomitant]
     Route: 065
  13. VITAMINS (UNSPECIFIED) [Concomitant]
     Route: 065
  14. CALCIUM CITRATE [Concomitant]
     Route: 065
  15. VITAMIN E [Concomitant]
     Route: 065
  16. ASCORBIC ACID [Concomitant]
     Route: 065
  17. PEPCID [Concomitant]
     Route: 065
  18. CHONDROITIN SULFATE SODIUM AND GLUCOSAMINE HYDROCHLORIDE [Concomitant]
     Route: 065

REACTIONS (8)
  - AORTIC ANEURYSM RUPTURE [None]
  - CARDIOVASCULAR DISORDER [None]
  - HAEMOTHORAX [None]
  - INFLUENZA LIKE ILLNESS [None]
  - MEDIASTINAL HAEMORRHAGE [None]
  - PNEUMONIA [None]
  - RENAL FAILURE ACUTE [None]
  - SEPSIS [None]
